FAERS Safety Report 13347022 (Version 1)
Quarter: 2017Q1

REPORT INFORMATION
  Report Type: Spontaneous
  Country: FR (occurrence: FR)
  Receive Date: 20170317
  Receipt Date: 20170317
  Transmission Date: 20170428
  Serious: Yes (Hospitalization)
  Sender: FDA-Public Use
  Company Number: FR-SA-2017SA043603

PATIENT
  Age: 51 Year
  Sex: Female

DRUGS (13)
  1. SPECIAFOLDINE [Concomitant]
     Active Substance: FOLIC ACID
  2. ENBREL [Concomitant]
     Active Substance: ETANERCEPT
  3. MOTILIUM [Concomitant]
     Active Substance: DOMPERIDONE
  4. METHYLPREDNISOLONE. [Concomitant]
     Active Substance: METHYLPREDNISOLONE
     Indication: PANCREAS ISLET CELL TRANSPLANT
     Dates: start: 20170213, end: 20170213
  5. XANAX [Concomitant]
     Active Substance: ALPRAZOLAM
  6. CELLCEPT [Concomitant]
     Active Substance: MYCOPHENOLATE MOFETIL\MYCOPHENOLATE MOFETIL HYDROCHLORIDE
     Indication: PANCREAS ISLET CELL TRANSPLANT
     Route: 048
     Dates: start: 20170214, end: 20170215
  7. THYMOGLOBULINE [Suspect]
     Active Substance: LAPINE T-LYMPHOCYTE IMMUNE GLOBULIN
     Indication: PANCREAS ISLET CELL TRANSPLANT
     Route: 042
     Dates: start: 20170213, end: 20170214
  8. IMETH [Concomitant]
     Active Substance: METHOTREXATE SODIUM
  9. MOPRAL [Concomitant]
     Active Substance: OMEPRAZOLE SODIUM
  10. MIANSERIN [Concomitant]
     Active Substance: MIANSERIN
  11. HUMALOG [Concomitant]
     Active Substance: INSULIN LISPRO
     Dosage: PUMP
  12. TRAMADOL. [Concomitant]
     Active Substance: TRAMADOL
  13. THYMOGLOBULINE [Suspect]
     Active Substance: LAPINE T-LYMPHOCYTE IMMUNE GLOBULIN
     Indication: PANCREAS ISLET CELL TRANSPLANT
     Route: 042
     Dates: start: 20170214, end: 20170215

REACTIONS (6)
  - Pain [Recovered/Resolved]
  - Cholestasis [Recovering/Resolving]
  - Coagulation factor decreased [Recovered/Resolved]
  - Pyrexia [Recovered/Resolved]
  - Hepatocellular injury [Recovering/Resolving]
  - Serum sickness [Recovered/Resolved]

NARRATIVE: CASE EVENT DATE: 20170214
